FAERS Safety Report 4303388-5 (Version None)
Quarter: 2004Q1

REPORT INFORMATION
  Report Type: 
  Country: None (occurrence: None)
  Receive Date: 20040223
  Receipt Date: 20040216
  Transmission Date: 20041129
  Serious: Yes (Hospitalization)
  Sender: FDA-Public Use
  Company Number: TUK2004A00012

PATIENT
  Age: 42 Year
  Sex: Female

DRUGS (13)
  1. ACTOS [Suspect]
     Indication: DIABETES MELLITUS
     Dosage: 30 MG PER ORAL
     Route: 048
     Dates: start: 20011001
  2. AMITRIPTYLINE HCL [Concomitant]
  3. METFORMIN HCL [Concomitant]
  4. GLICLAZIDE (GLICLAZIDE) [Concomitant]
  5. VALSARTAN (VALSARTAN) [Concomitant]
  6. BENDROFLUAZIDE (BENDROFLUMETHIAZIDE) [Concomitant]
  7. SERETIDE [Concomitant]
  8. CITALOPRAM [Concomitant]
  9. RANITIDINE [Concomitant]
  10. WARFARIN SODIUM [Concomitant]
  11. PARACETAMOL (PARACETAMOL) [Concomitant]
  12. CODEINE (CODEINE) [Concomitant]
  13. SALBUTAMOL (SALBUTAMOL) [Concomitant]

REACTIONS (4)
  - HYPOTENSION [None]
  - PULMONARY EMBOLISM [None]
  - RENAL FAILURE ACUTE [None]
  - TACHYCARDIA [None]
